FAERS Safety Report 17380486 (Version 1)
Quarter: 2020Q1

REPORT INFORMATION
  Report Type: Spontaneous
  Country: US (occurrence: US)
  Receive Date: 20200206
  Receipt Date: 20200206
  Transmission Date: 20200409
  Serious: Yes (Other)
  Sender: FDA-Public Use
  Company Number: None

PATIENT
  Age: 65 Year
  Sex: Female
  Weight: 73.35 kg

DRUGS (1)
  1. JARDIANCE [Suspect]
     Active Substance: EMPAGLIFLOZIN
     Indication: TYPE 2 DIABETES MELLITUS
     Route: 048
     Dates: start: 20200101, end: 20200204

REACTIONS (7)
  - Hypophagia [None]
  - Pain in extremity [None]
  - Arrhythmia [None]
  - Paraesthesia [None]
  - Blood glucose increased [None]
  - Gait disturbance [None]
  - Nausea [None]

NARRATIVE: CASE EVENT DATE: 20200102
